FAERS Safety Report 14161778 (Version 2)
Quarter: 2017Q4

REPORT INFORMATION
  Report Type: Spontaneous
  Country: RS (occurrence: RS)
  Receive Date: 20171106
  Receipt Date: 20171220
  Transmission Date: 20180321
  Serious: Yes (Death)
  Sender: FDA-Public Use
  Company Number: RS-PFIZER INC-2017476712

PATIENT
  Age: 63 Year
  Sex: Male

DRUGS (4)
  1. PRESOLOL [Concomitant]
     Indication: HYPERTENSION
     Dosage: 50 MG, 2X/DAY
     Route: 048
     Dates: end: 20171013
  2. ENALAPRIL [Concomitant]
     Active Substance: ENALAPRIL
     Indication: HYPERTENSION
     Dosage: 10 MG, 2X/DAY
     Dates: end: 20171008
  3. EFTIL /01294701/ [Concomitant]
     Indication: EPILEPSY
     Dosage: UNK, 1X/DAY
     Route: 048
     Dates: start: 201606, end: 20171001
  4. SUTENT [Suspect]
     Active Substance: SUNITINIB MALATE
     Indication: METASTATIC RENAL CELL CARCINOMA
     Dosage: 50 MG CYCLIC (1X/DAY, THE 5TH CYCLE, 4 WEEKS ON, 2 WEEKS PAUSE)
     Route: 048
     Dates: start: 20170922, end: 20171001

REACTIONS (1)
  - Capillaritis [Fatal]

NARRATIVE: CASE EVENT DATE: 20171002
